FAERS Safety Report 6134554-4 (Version None)
Quarter: 2009Q1

REPORT INFORMATION
  Report Type: 
  Country: None (occurrence: None)
  Receive Date: 20090327
  Receipt Date: 20090320
  Transmission Date: 20090719
  Serious: Yes (Hospitalization)
  Sender: FDA-Public Use
  Company Number: FR-BRISTOL-MYERS SQUIBB COMPANY-14352843

PATIENT
  Age: 71 Year
  Sex: Female

DRUGS (10)
  1. GLUCOPHAGE [Suspect]
     Dosage: 2 DOSAGE FORM = 2 TABLETS
     Route: 048
     Dates: end: 20080326
  2. APROVEL TABS 150 MG [Suspect]
     Dosage: 2 DOSAGE FORM = 2TABS;DOSE INCREASED TO 300 MG AT THE END OF 2007.
     Route: 048
     Dates: start: 20070101, end: 20080326
  3. REPAGLINIDE [Concomitant]
  4. SINGULAIR [Concomitant]
  5. VENTOLIN [Concomitant]
  6. ALLOPURINOL [Concomitant]
  7. TAHOR [Concomitant]
  8. DI-ANTALVIC [Concomitant]
  9. LEXOMIL [Concomitant]
  10. DAFLON [Concomitant]

REACTIONS (2)
  - GASTROENTERITIS [None]
  - LACTIC ACIDOSIS [None]
